FAERS Safety Report 26051930 (Version 1)
Quarter: 2025Q4

REPORT INFORMATION
  Report Type: Other
  Country: IL (occurrence: IL)
  Receive Date: 20251117
  Receipt Date: 20251117
  Transmission Date: 20260118
  Serious: Yes (Death, Hospitalization, Other)
  Sender: ANI
  Company Number: IL-ANIPHARMA-031126

PATIENT
  Age: 82 Year
  Sex: Male

DRUGS (1)
  1. CEFUROXIME [Suspect]
     Active Substance: CEFUROXIME
     Indication: Escherichia infection

REACTIONS (3)
  - Septic shock [Fatal]
  - Abscess [Fatal]
  - Drug ineffective [Unknown]
